FAERS Safety Report 6274831-X (Version None)
Quarter: 2009Q3

REPORT INFORMATION
  Report Type: 
  Country: None (occurrence: None)
  Receive Date: 20090721
  Receipt Date: 20090710
  Transmission Date: 20100115
  Serious: Yes (Other)
  Sender: FDA-Public Use
  Company Number: US-TEVA-201481USA

PATIENT

DRUGS (1)
  1. PROPOFOL [Suspect]
     Indication: ENDOSCOPY
     Route: 042

REACTIONS (2)
  - PRODUCT CONTAMINATION MICROBIAL [None]
  - PYREXIA [None]
